FAERS Safety Report 23663984 (Version 1)
Quarter: 2024Q1

REPORT INFORMATION
  Report Type: Spontaneous
  Country: ES (occurrence: None)
  Receive Date: 20240322
  Receipt Date: 20240322
  Transmission Date: 20240410
  Serious: Yes (Life-Threatening)
  Sender: FDA-Public Use
  Company Number: 2024A068588

PATIENT
  Sex: Female
  Weight: 58 kg

DRUGS (1)
  1. FASENRA [Suspect]
     Active Substance: BENRALIZUMAB
     Indication: Asthma
     Route: 058
     Dates: start: 20230917, end: 20240319

REACTIONS (2)
  - Eosinophil count increased [Recovered/Resolved]
  - Drug ineffective [Unknown]
